FAERS Safety Report 23443255 (Version 2)
Quarter: 2024Q1

REPORT INFORMATION
  Report Type: Spontaneous
  Country: US (occurrence: US)
  Receive Date: 20240125
  Receipt Date: 20240304
  Transmission Date: 20240409
  Serious: No
  Sender: FDA-Public Use
  Company Number: US-SA-SAC20240119000634

PATIENT
  Sex: Female

DRUGS (17)
  1. DUPIXENT [Suspect]
     Active Substance: DUPILUMAB
     Indication: Dermatitis atopic
     Dosage: 300 MG, QOW
     Route: 058
     Dates: start: 20220222
  2. ALBUTEROL [Concomitant]
     Active Substance: ALBUTEROL
  3. DULOXETINE [Concomitant]
     Active Substance: DULOXETINE
  4. FLUCONAZOLE [Concomitant]
     Active Substance: FLUCONAZOLE
  5. FLUTICASONE [Concomitant]
     Active Substance: FLUTICASONE
  6. NAPROXEN [Concomitant]
     Active Substance: NAPROXEN
  7. OMEPRAZOLE [Concomitant]
     Active Substance: OMEPRAZOLE
  8. ONDANSETRON [Concomitant]
     Active Substance: ONDANSETRON
  9. PANTOPRAZOLE [Concomitant]
     Active Substance: PANTOPRAZOLE
  10. PREDNISONE [Concomitant]
     Active Substance: PREDNISONE
  11. PROMETHAZINE [Concomitant]
     Active Substance: PROMETHAZINE HYDROCHLORIDE
  12. TIMOLOL MALEATE [Concomitant]
     Active Substance: TIMOLOL MALEATE
  13. CLARITHROMYCIN [Concomitant]
     Active Substance: CLARITHROMYCIN
  14. DULOXETINE [Concomitant]
     Active Substance: DULOXETINE
  15. DULOXETINE [Concomitant]
     Active Substance: DULOXETINE
  16. HYDROCHLOROTHIAZIDE [Concomitant]
     Active Substance: HYDROCHLOROTHIAZIDE
  17. HYDROXYZINE HYDROCHLORIDE [Concomitant]
     Active Substance: HYDROXYZINE HYDROCHLORIDE

REACTIONS (6)
  - Discomfort [Recovered/Resolved]
  - Sleep disorder [Recovered/Resolved]
  - Stress [Unknown]
  - Rash [Recovered/Resolved]
  - Dermatitis atopic [Unknown]
  - Product dose omission issue [Unknown]
